FAERS Safety Report 23821370 (Version 1)
Quarter: 2024Q2

REPORT INFORMATION
  Report Type: Report from Study
  Country: CA (occurrence: CA)
  Receive Date: 20240506
  Receipt Date: 20240506
  Transmission Date: 20240716
  Serious: Yes (Death, Other)
  Sender: FDA-Public Use
  Company Number: CA-BAYER-2024A062428

PATIENT
  Sex: Female

DRUGS (1)
  1. EYLEA [Suspect]
     Active Substance: AFLIBERCEPT
     Indication: Age-related macular degeneration
     Dosage: 21 OS EVERY 12 WEEKS. SOLUTION FOR INJECTION, 40 MG/ML
     Dates: start: 20091127, end: 20240201

REACTIONS (1)
  - Death [Fatal]
